FAERS Safety Report 4431420-7 (Version None)
Quarter: 2004Q3

REPORT INFORMATION
  Report Type: 
  Country: None (occurrence: None)
  Receive Date: 20040824
  Receipt Date: 20040820
  Transmission Date: 20050211
  Serious: Yes (Death, Life-Threatening, Hospitalization, Disabling, Other)
  Sender: FDA-Public Use
  Company Number: US-GLAXOSMITHKLINE-A0522919A

PATIENT
  Age: 45 Year
  Sex: Male

DRUGS (4)
  1. LEXIVA [Suspect]
     Indication: HIV INFECTION
     Route: 048
  2. VIREAD [Concomitant]
  3. EMTRIVA [Concomitant]
  4. RITONAVIR [Concomitant]

REACTIONS (2)
  - DEATH [None]
  - JAUNDICE [None]
